FAERS Safety Report 8027458-3 (Version None)
Quarter: 2012Q1

REPORT INFORMATION
  Report Type: 
  Country: None (occurrence: None)
  Receive Date: 20120104
  Receipt Date: 20111221
  Transmission Date: 20120608
  Serious: Yes (Life-Threatening)
  Sender: FDA-Public Use
  Company Number: 2011AP003153

PATIENT

DRUGS (3)
  1. GABAPENTIN [Concomitant]
  2. CITALOPRAM HYDROBROMIDE [Suspect]
     Indication: DEPRESSION
     Route: 048
     Dates: start: 20111201, end: 20111211
  3. CARBAMAZEPINE [Concomitant]

REACTIONS (1)
  - STATUS EPILEPTICUS [None]
